FAERS Safety Report 12381891 (Version 2)
Quarter: 2016Q2

REPORT INFORMATION
  Report Type: Spontaneous
  Country: US (occurrence: US)
  Receive Date: 20160518
  Receipt Date: 20160523
  Transmission Date: 20160815
  Serious: No
  Sender: FDA-Public Use
  Company Number: US-BAYER-2016-095585

PATIENT
  Age: 23 Year
  Sex: Female
  Weight: 112.2 kg

DRUGS (1)
  1. ALEVE [Suspect]
     Active Substance: NAPROXEN SODIUM
     Indication: MIGRAINE
     Dosage: UNK
     Dates: start: 2003

REACTIONS (3)
  - Product use issue [None]
  - Product use issue [None]
  - Exposure during pregnancy [None]

NARRATIVE: CASE EVENT DATE: 2003
